FAERS Safety Report 8004948-0 (Version None)
Quarter: 2011Q4

REPORT INFORMATION
  Report Type: 
  Country: None (occurrence: None)
  Receive Date: 20111223
  Receipt Date: 20111215
  Transmission Date: 20120403
  Serious: Yes (Life-Threatening, Hospitalization)
  Sender: FDA-Public Use
  Company Number: DE-JNJFOC-20111208163

PATIENT
  Sex: Male

DRUGS (3)
  1. AMITRIPTYLINE [Suspect]
     Indication: ILL-DEFINED DISORDER
  2. XARELTO [Suspect]
     Indication: MENISCUS OPERATION
     Route: 065
     Dates: end: 20111201
  3. IBUPROFEN [Suspect]
     Indication: ILL-DEFINED DISORDER

REACTIONS (2)
  - POISONING [None]
  - HAEMORRHAGE [None]
